FAERS Safety Report 8317447-3 (Version None)
Quarter: 2012Q2

REPORT INFORMATION
  Report Type: 
  Country: None (occurrence: None)
  Receive Date: 20120427
  Receipt Date: 20120417
  Transmission Date: 20120825
  Serious: Yes (Hospitalization)
  Sender: FDA-Public Use
  Company Number: US-CELGENEUS-163-21880-12031243

PATIENT
  Sex: Female
  Weight: 54.934 kg

DRUGS (1)
  1. REVLIMID [Suspect]
     Indication: MULTIPLE MYELOMA
     Dosage: 25 MILLIGRAM
     Route: 048
     Dates: start: 20111201, end: 20120213

REACTIONS (5)
  - FULL BLOOD COUNT DECREASED [None]
  - OEDEMA PERIPHERAL [None]
  - DEHYDRATION [None]
  - RESPIRATORY DISORDER [None]
  - HYPOTENSION [None]
